FAERS Safety Report 18141491 (Version 1)
Quarter: 2020Q3

REPORT INFORMATION
  Report Type: Report from Study
  Country: NZ (occurrence: NZ)
  Receive Date: 20200812
  Receipt Date: 20200812
  Transmission Date: 20201103
  Serious: Yes (Hospitalization, Other)
  Sender: FDA-Public Use
  Company Number: NVSC2020NZ220018

PATIENT
  Age: 8 Year
  Sex: Female
  Weight: 20.3 kg

DRUGS (18)
  1. CYCLOPHOSPHAMIDE. [Suspect]
     Active Substance: CYCLOPHOSPHAMIDE
     Dosage: 3310 MG (TOTAL DOSE ADMINISTERED OVER COURSE 1 AND 2)
     Route: 041
     Dates: end: 20200605
  2. CISPLATIN. [Suspect]
     Active Substance: CISPLATIN
     Dosage: 159 MG
     Route: 041
     Dates: start: 20200622, end: 20200624
  3. DOXORUBICIN HYDROCHLORIDE. [Suspect]
     Active Substance: DOXORUBICIN HYDROCHLORIDE
     Indication: PRODUCT USED FOR UNKNOWN INDICATION
     Dosage: UNK (37.5 MG/M2/DOSE, IV ON DAYS 1 AND 2; FOR BSA { 0.6 M2)
     Route: 065
  4. UNITUXIN [Suspect]
     Active Substance: DINUTUXIMAB
     Dosage: UNK (CYCLE 4, 17.5 MG/M2/DOSE ON DAYS 2?5,)
     Route: 065
  5. ETOPOSIDE. [Suspect]
     Active Substance: ETOPOSIDE
     Indication: NEUROBLASTOMA
     Dosage: UNK
     Route: 041
     Dates: start: 20200508, end: 20200605
  6. CYCLOPHOSPHAMIDE. [Suspect]
     Active Substance: CYCLOPHOSPHAMIDE
     Dosage: UNK (1500 MG/M2/DOSE ON DAYS ?5 TO ?2; IF {= 12 KG: 50 MG/KG/DOSE)
     Route: 065
  7. ISOTRETINOIN. [Suspect]
     Active Substance: ISOTRETINOIN
     Indication: PRODUCT USED FOR UNKNOWN INDICATION
     Route: 065
  8. ETOPOSIDE. [Suspect]
     Active Substance: ETOPOSIDE
     Dosage: UNK (CYCLE 3 AND 5: 200 MG/M2, (DAYS 1?3; FOR BSA { 0.6 M2))
     Route: 041
  9. CISPLATIN. [Suspect]
     Active Substance: CISPLATIN
     Indication: NEUROBLASTOMA
     Dosage: UNK
     Route: 041
     Dates: start: 20200508
  10. HYCAMTIN [Suspect]
     Active Substance: TOPOTECAN HYDROCHLORIDE
     Dosage: UNK
     Route: 041
     Dates: end: 20200605
  11. CISPLATIN. [Suspect]
     Active Substance: CISPLATIN
     Dosage: UNK (CYCLE 3 AND 5: 60 MG/M2 (DAYS 1?3; FOR BSA { 0.6 M2))
     Route: 041
  12. HYCAMTIN [Suspect]
     Active Substance: TOPOTECAN HYDROCHLORIDE
     Indication: NEUROBLASTOMA
     Dosage: UNK (CYCLES 1 AND 2: 1.2 MG/M2, (DAYS 1?5; FOR BSA { 0.6 M2))
     Route: 041
     Dates: start: 20200508
  13. ETOPOSIDE. [Suspect]
     Active Substance: ETOPOSIDE
     Dosage: 525 MG
     Route: 041
     Dates: start: 20200622, end: 20200624
  14. UNITUXIN [Suspect]
     Active Substance: DINUTUXIMAB
     Indication: PRODUCT USED FOR UNKNOWN INDICATION
     Dosage: UNK (CYCLE 1)
     Route: 041
     Dates: start: 20200508
  15. UNITUXIN [Suspect]
     Active Substance: DINUTUXIMAB
     Dosage: 61.6 MG (CYCLE 3, DAY 5, 17.5 MG/M2/DOSE (DAYS 2?5))
     Route: 041
     Dates: start: 20200623, end: 20200626
  16. CYCLOPHOSPHAMIDE. [Suspect]
     Active Substance: CYCLOPHOSPHAMIDE
     Indication: NEUROBLASTOMA
     Dosage: UNK (CYCLES 1 AND 2: 400 MG/M2 (DAYS 1?5; FOR BSA { 0.6 M2))
     Route: 041
     Dates: start: 20200508
  17. CYCLOPHOSPHAMIDE. [Suspect]
     Active Substance: CYCLOPHOSPHAMIDE
     Dosage: UNK (2000 MG/M2/DOSE ON DAYS 1 AND 2; FOR)
     Route: 065
  18. VINCRISTINE SULFATE. [Suspect]
     Active Substance: VINCRISTINE SULFATE
     Indication: PRODUCT USED FOR UNKNOWN INDICATION
     Dosage: UNK (2 MG/M2, IV ON DAY 1; FOR BSA { 0.6 M2)
     Route: 042

REACTIONS (6)
  - Pleural effusion [Unknown]
  - Blood lactate dehydrogenase increased [Unknown]
  - Protein total decreased [Unknown]
  - Chylothorax [Recovering/Resolving]
  - Pneumothorax [Unknown]
  - Blood triglycerides increased [Unknown]

NARRATIVE: CASE EVENT DATE: 202006
